FAERS Safety Report 8410132-9 (Version None)
Quarter: 2012Q2

REPORT INFORMATION
  Report Type: 
  Country: None (occurrence: None)
  Receive Date: 20120605
  Receipt Date: 20120601
  Transmission Date: 20120825
  Serious: No
  Sender: FDA-Public Use
  Company Number: US-PFIZER INC-2012132361

PATIENT
  Sex: Male

DRUGS (1)
  1. NICOTROL [Suspect]
     Dosage: UNK
     Route: 055

REACTIONS (3)
  - FEELING ABNORMAL [None]
  - FORMICATION [None]
  - DISTURBANCE IN ATTENTION [None]
